FAERS Safety Report 20552500 (Version 5)
Quarter: 2023Q1

REPORT INFORMATION
  Report Type: Spontaneous
  Country: US (occurrence: US)
  Receive Date: 20220304
  Receipt Date: 20230307
  Transmission Date: 20230417
  Serious: Yes (Hospitalization, Other)
  Sender: FDA-Public Use
  Company Number: US-PFIZER INC-202200327165

PATIENT
  Age: 70 Year
  Sex: Female
  Weight: 74.84 kg

DRUGS (9)
  1. IBRANCE [Interacting]
     Active Substance: PALBOCICLIB
     Indication: Breast cancer metastatic
     Dosage: 125 MG
     Dates: start: 202105
  2. IBRANCE [Interacting]
     Active Substance: PALBOCICLIB
     Dosage: 100 MG
     Dates: start: 202107
  3. IBRANCE [Interacting]
     Active Substance: PALBOCICLIB
     Dosage: 75 MG, CYCLIC (75MG, TABLET, BY MOUTH, ONCE DAILY FOR 21 DAYS ON, 7 DAY OFF)
     Route: 048
     Dates: start: 202111
  4. LOTENSIN [Interacting]
     Active Substance: BENAZEPRIL HYDROCHLORIDE
     Indication: Hypertension
     Dosage: UNK
  5. LOTENSIN [Interacting]
     Active Substance: BENAZEPRIL HYDROCHLORIDE
     Dosage: 0.5 DF (CUT IN HALF)
  6. LOTENSIN [Interacting]
     Active Substance: BENAZEPRIL HYDROCHLORIDE
     Dosage: 20 MG
     Dates: start: 200210
  7. POTASSIUM CHLORIDE [Concomitant]
     Active Substance: POTASSIUM CHLORIDE
     Dosage: 10 MEQ
     Dates: start: 202205
  8. MAGNESIUM GLYCINATE [Concomitant]
     Active Substance: MAGNESIUM GLYCINATE
     Dosage: 500 MG
  9. SPIRONOLACTONE [Concomitant]
     Active Substance: SPIRONOLACTONE
     Dosage: UNK

REACTIONS (7)
  - Drug interaction [Not Recovered/Not Resolved]
  - Presyncope [Not Recovered/Not Resolved]
  - Dizziness [Not Recovered/Not Resolved]
  - Asthenia [Not Recovered/Not Resolved]
  - Hypertension [Not Recovered/Not Resolved]
  - Exostosis [Not Recovered/Not Resolved]
  - Postural orthostatic tachycardia syndrome [Unknown]

NARRATIVE: CASE EVENT DATE: 20210601
